FAERS Safety Report 15626939 (Version 3)
Quarter: 2018Q4

REPORT INFORMATION
  Report Type: Spontaneous
  Country: US (occurrence: US)
  Receive Date: 20181116
  Receipt Date: 20181218
  Transmission Date: 20190205
  Serious: Yes (Other)
  Sender: FDA-Public Use
  Company Number: US-PFIZER INC-2018467549

PATIENT
  Age: 76 Year
  Sex: Male
  Weight: 111.1 kg

DRUGS (13)
  1. NITROSTAT [Concomitant]
     Active Substance: NITROGLYCERIN
     Dosage: 0.4 MG, DAILY
  2. DIAZEPAM. [Suspect]
     Active Substance: DIAZEPAM
     Indication: INSOMNIA
  3. VALERIANA OFFICINALIS ROOT [Concomitant]
     Active Substance: VALERIAN
     Dosage: UNK (AS DIRECTED)
  4. MELATONIN [Concomitant]
     Active Substance: MELATONIN
     Dosage: 5 MG, DAILY
  5. DIAZEPAM. [Suspect]
     Active Substance: DIAZEPAM
     Indication: ANXIETY
     Dosage: 10 MG, 2X/DAY (3 YEARS AGO)
  6. ASPIRIN. [Concomitant]
     Active Substance: ASPIRIN
     Dosage: 81 MG, DAILY
  7. CLOPIDOGREL [Concomitant]
     Active Substance: CLOPIDOGREL BISULFATE
     Dosage: 75 MG, DAILY
  8. COENZYME Q10 [Concomitant]
     Active Substance: UBIDECARENONE
     Dosage: 100 MG, DAILY
  9. DULOXETINE. [Concomitant]
     Active Substance: DULOXETINE
     Dosage: UNK, DAILY (60-90MG)
  10. HYOSCYAMINE. [Concomitant]
     Active Substance: HYOSCYAMINE
     Dosage: 0.125 MG, DAILY
  11. UBIQUINOL [Concomitant]
     Active Substance: UBIQUINOL
     Dosage: UNK (AS DIRECTED)
  12. ACICLOVIR [Concomitant]
     Active Substance: ACYCLOVIR
     Dosage: 200 MG, DAILY
  13. SILYMARIN [Concomitant]
     Active Substance: DIETARY SUPPLEMENT\HERBALS\MILK THISTLE
     Dosage: 1 DF, UNK (TABLET)
     Route: 048

REACTIONS (2)
  - Toxicity to various agents [Recovered/Resolved]
  - Anterograde amnesia [Recovered/Resolved]
